FAERS Safety Report 10081992 (Version 3)
Quarter: 2014Q2

REPORT INFORMATION
  Report Type: Spontaneous
  Country: US (occurrence: None)
  Receive Date: 20140414
  Receipt Date: 20140627
  Transmission Date: 20141212
  Serious: Yes (Hospitalization, Other)
  Sender: FDA-Public Use
  Company Number: 2014-US-003949

PATIENT
  Age: 47 Year
  Sex: Female

DRUGS (1)
  1. XYREM (SODIUM OXYBATE) ORAL SOLUTION, 500MG/ML [Suspect]
     Indication: NARCOLEPSY
     Route: 048
     Dates: start: 201403, end: 2014

REACTIONS (9)
  - Convulsion [None]
  - Unresponsive to stimuli [None]
  - Aspiration [None]
  - Contusion [None]
  - Urinary incontinence [None]
  - Hypotension [None]
  - Vomiting [None]
  - Stereotypy [None]
  - Overdose [None]
